FAERS Safety Report 19323870 (Version 1)
Quarter: 2021Q2

REPORT INFORMATION
  Report Type: Spontaneous
  Country: US (occurrence: US)
  Receive Date: 20210528
  Receipt Date: 20210528
  Transmission Date: 20210717
  Serious: Yes (Disabling, Other)
  Sender: FDA-Public Use
  Company Number: US-PURDUE-USA-2020-0219400

PATIENT
  Sex: Male

DRUGS (11)
  1. OXYCODONE HCL CR TABLETS (SIMILAR TO NDA 22?272) [Suspect]
     Active Substance: OXYCODONE HYDROCHLORIDE
     Indication: INJURY
     Dosage: UNKNOWN
     Route: 048
  2. MS CONTIN [Suspect]
     Active Substance: MORPHINE SULFATE
     Indication: INJURY
     Dosage: UNKNOWN
     Route: 048
  3. TRAMADOL CR TABLETS (RHODES 21?745) [Suspect]
     Active Substance: TRAMADOL
     Indication: INJURY
     Dosage: UNKNOWN
     Route: 065
  4. MORPHINE SULFATE EXTENDED?RELEASE TABLETS (RHODES 74?769) [Suspect]
     Active Substance: MORPHINE SULFATE
     Indication: INJURY
     Dosage: UNKNOWN
     Route: 048
  5. OXYCODONE/ ACETAMINOPHEN TABLETS [Suspect]
     Active Substance: ACETAMINOPHEN\OXYCODONE HYDROCHLORIDE
     Indication: INJURY
     Dosage: UNKNOWN
     Route: 048
  6. OXYFAST [Suspect]
     Active Substance: OXYCODONE
     Indication: INJURY
     Dosage: UNKNOWN
     Route: 065
  7. DILAUDID [Suspect]
     Active Substance: HYDROMORPHONE HYDROCHLORIDE
     Indication: INJURY
     Dosage: UNKNOWN
     Route: 048
  8. OXYCONTIN [Suspect]
     Active Substance: OXYCODONE HYDROCHLORIDE
     Indication: INJURY
     Dosage: UNKNOWN
     Route: 048
  9. OXYCODONE HCL TABLETS (RHODES 91?490) [Suspect]
     Active Substance: OXYCODONE HYDROCHLORIDE
     Indication: INJURY
     Dosage: UNKNOWN
     Route: 048
  10. BUPRENORPHINE TRANSDERMAL PATCH [Suspect]
     Active Substance: BUPRENORPHINE
     Indication: INJURY
     Dosage: UNKNOWN
     Route: 062
  11. HYDROCODONE BITARTRATE AND ACETAMINOPHEN [Suspect]
     Active Substance: ACETAMINOPHEN\HYDROCODONE BITARTRATE
     Indication: INJURY
     Dosage: UNKNOWN
     Route: 048

REACTIONS (4)
  - Overdose [Unknown]
  - Emotional distress [Unknown]
  - Drug dependence [Unknown]
  - Pain [Unknown]
